FAERS Safety Report 15764667 (Version 6)
Quarter: 2019Q2

REPORT INFORMATION
  Report Type: Report from Study
  Country: CO (occurrence: CO)
  Receive Date: 20181227
  Receipt Date: 20190514
  Transmission Date: 20190711
  Serious: Yes (Hospitalization, Other)
  Sender: FDA-Public Use
  Company Number: CO-ASTELLAS-2018US054960

PATIENT
  Age: 43 Year
  Sex: Female
  Weight: 46 kg

DRUGS (6)
  1. TACROLIMUS. [Suspect]
     Active Substance: TACROLIMUS
     Indication: RENAL TRANSPLANT
     Route: 048
     Dates: start: 20150101
  2. AZATHIOPRINE. [Concomitant]
     Active Substance: AZATHIOPRINE
     Indication: TRANSPLANT
     Route: 048
     Dates: start: 20150101, end: 20190307
  3. FOLIC ACID. [Concomitant]
     Active Substance: FOLIC ACID
     Indication: HAEMOGLOBIN
     Route: 048
     Dates: start: 201812
  4. TACROLIMUS. [Suspect]
     Active Substance: TACROLIMUS
     Route: 048
     Dates: end: 20190307
  5. PREDNISOLONE. [Concomitant]
     Active Substance: PREDNISOLONE
     Indication: TRANSPLANT
     Route: 048
     Dates: start: 20150101
  6. PREDNISOLONE. [Concomitant]
     Active Substance: PREDNISOLONE
     Route: 048
     Dates: start: 20150101

REACTIONS (10)
  - Urinary tract infection [Recovered/Resolved]
  - Renal transplant failure [Not Recovered/Not Resolved]
  - Toxicity to various agents [Unknown]
  - Haemoglobin decreased [Not Recovered/Not Resolved]
  - Meningitis [Not Recovered/Not Resolved]
  - Headache [Not Recovered/Not Resolved]
  - Decreased immune responsiveness [Not Recovered/Not Resolved]
  - Fatigue [Not Recovered/Not Resolved]
  - Dizziness [Not Recovered/Not Resolved]
  - Platelet count decreased [Not Recovered/Not Resolved]

NARRATIVE: CASE EVENT DATE: 20181206
